FAERS Safety Report 11105800 (Version 1)
Quarter: 2015Q2

REPORT INFORMATION
  Report Type: Spontaneous
  Country: US (occurrence: None)
  Receive Date: 20150511
  Receipt Date: 20150511
  Transmission Date: 20150821
  Serious: Yes (Hospitalization, Disabling, Other)
  Sender: FDA-Public Use
  Company Number: None

PATIENT
  Age: 63 Year
  Sex: Male
  Weight: 90.9 kg

DRUGS (1)
  1. LEUPROLIDE ACETATE. [Suspect]
     Active Substance: LEUPROLIDE ACETATE
     Indication: PROSTATE CANCER
     Dosage: EVERY 3 MONTHS
     Dates: start: 20130525, end: 20150114

REACTIONS (6)
  - Diabetes insipidus [None]
  - Dyskinesia [None]
  - General physical health deterioration [None]
  - Muscle spasms [None]
  - Sleep disorder [None]
  - Blood sodium decreased [None]

NARRATIVE: CASE EVENT DATE: 20130724
